FAERS Safety Report 10738797 (Version 1)
Quarter: 2015Q1

REPORT INFORMATION
  Report Type: Spontaneous
  Country: US (occurrence: US)
  Receive Date: 20150126
  Receipt Date: 20150126
  Transmission Date: 20150721
  Serious: No
  Sender: FDA-Public Use
  Company Number: US-GLAXOSMITHKLINE-US2014GSK048337

PATIENT
  Age: 82 Year
  Sex: Female

DRUGS (11)
  1. OMEPRAZOLE. [Concomitant]
     Active Substance: OMEPRAZOLE
  2. NYSTATIN. [Suspect]
     Active Substance: NYSTATIN
     Dosage: 4 DF, U
  3. CETIRIZINE [Concomitant]
     Active Substance: CETIRIZINE HYDROCHLORIDE
  4. VITAMIN [Concomitant]
     Active Substance: VITAMINS
  5. MIRALAX [Concomitant]
     Active Substance: POLYETHYLENE GLYCOL 3350
  6. PROBIOTIC [Concomitant]
     Active Substance: PROBIOTICS NOS
  7. ADVAIR DISKUS [Suspect]
     Active Substance: FLUTICASONE PROPIONATE\SALMETEROL XINAFOATE
     Indication: CHRONIC OBSTRUCTIVE PULMONARY DISEASE
     Dosage: UNK, BID
     Route: 055
     Dates: start: 201409, end: 20141017
  8. NYSTATIN. [Suspect]
     Active Substance: NYSTATIN
     Indication: OROPHARYNGEAL PAIN
     Dosage: 1 DF, QD
  9. LESCOL XL [Concomitant]
     Active Substance: FLUVASTATIN SODIUM
  10. ZETIA [Concomitant]
     Active Substance: EZETIMIBE
  11. CALTRATE [Concomitant]
     Active Substance: CALCIUM CARBONATE

REACTIONS (3)
  - Throat irritation [Recovering/Resolving]
  - Oropharyngeal pain [Unknown]
  - Stomatitis [Recovering/Resolving]

NARRATIVE: CASE EVENT DATE: 201410
